FAERS Safety Report 25022429 (Version 2)
Quarter: 2025Q1

REPORT INFORMATION
  Report Type: Spontaneous
  Country: PL (occurrence: PL)
  Receive Date: 20250228
  Receipt Date: 20250313
  Transmission Date: 20250409
  Serious: Yes (Death, Other)
  Sender: Kenvue
  Company Number: PL-UCBSA-2025007466

PATIENT

DRUGS (1)
  1. CETIRIZINE HYDROCHLORIDE\PSEUDOEPHEDRINE HYDROCHLORIDE [Suspect]
     Active Substance: CETIRIZINE HYDROCHLORIDE\PSEUDOEPHEDRINE HYDROCHLORIDE
     Indication: Product used for unknown indication
     Route: 065
     Dates: start: 1975

REACTIONS (2)
  - Myocardial infarction [Fatal]
  - Nasal obstruction [Unknown]

NARRATIVE: CASE EVENT DATE: 19750807
